FAERS Safety Report 9224886 (Version 5)
Quarter: 2014Q2

REPORT INFORMATION
  Report Type: Report from Study
  Country: DE (occurrence: DE)
  Receive Date: 20130411
  Receipt Date: 20140612
  Transmission Date: 20141212
  Serious: Yes (Hospitalization)
  Sender: FDA-Public Use
  Company Number: DE-BAYER-2013-039728

PATIENT
  Age: 74 Year
  Sex: Female
  Weight: 50 kg

DRUGS (3)
  1. SORAFENIB (RAF KINASE INHIBITOR) [Suspect]
     Indication: METASTATIC OCULAR MELANOMA
     Dosage: 800 MG, DAILY
     Route: 048
     Dates: start: 20130220, end: 20130320
  2. SORAFENIB (RAF KINASE INHIBITOR) [Suspect]
     Indication: METASTATIC OCULAR MELANOMA
     Dosage: 800 MG, DAILY
     Route: 048
     Dates: start: 20130403, end: 20130416
  3. BLINDED SORAFENIB (RAF KINASE INHIBITOR) [Suspect]
     Dosage: UNK

REACTIONS (3)
  - Syncope [Recovered/Resolved]
  - Syncope [None]
  - Fall [Unknown]
